FAERS Safety Report 7457715-0 (Version None)
Quarter: 2011Q2

REPORT INFORMATION
  Report Type: 
  Country: None (occurrence: None)
  Receive Date: 20110504
  Receipt Date: 20110425
  Transmission Date: 20111010
  Serious: Yes (Hospitalization)
  Sender: FDA-Public Use
  Company Number: US-ROCHE-773891

PATIENT
  Sex: Male

DRUGS (4)
  1. PRIMPERAN TAB [Concomitant]
     Dates: start: 20110405
  2. ONDANSETRON [Concomitant]
     Dates: start: 20110405
  3. CISPLATIN [Suspect]
     Indication: METASTATIC GASTRIC CANCER
     Route: 042
     Dates: start: 20110405
  4. CAPECITABINE [Suspect]
     Indication: METASTATIC GASTRIC CANCER
     Route: 048
     Dates: start: 20110405, end: 20110413

REACTIONS (2)
  - NAUSEA [None]
  - LIPASE INCREASED [None]
